FAERS Safety Report 15214383 (Version 2)
Quarter: 2018Q3

REPORT INFORMATION
  Report Type: Report from Study
  Country: None (occurrence: IL)
  Receive Date: 20180730
  Receipt Date: 20180817
  Transmission Date: 20181010
  Serious: Yes (Hospitalization)
  Sender: FDA-Public Use
  Company Number: IL-ABBVIE-18S-082-2429302-00

PATIENT
  Age: 55 Year
  Sex: Male
  Weight: 176 kg

DRUGS (10)
  1. GLUCOMINE [Concomitant]
     Indication: TYPE 2 DIABETES MELLITUS
     Route: 048
  2. VIEKIRAX [Suspect]
     Active Substance: OMBITASVIR\PARITAPREVIR\RITONAVIR
     Indication: PRODUCT USED FOR UNKNOWN INDICATION
     Dosage: EVERY MORNING
     Route: 048
     Dates: start: 20170629, end: 20170917
  3. METHADONE [Concomitant]
     Active Substance: METHADONE HYDROCHLORIDE
     Indication: PRODUCT SUBSTITUTION
  4. METHADONE SOL [Concomitant]
     Indication: DRUG ABUSE
     Route: 048
  5. LYRICA [Concomitant]
     Active Substance: PREGABALIN
     Indication: PRODUCT USED FOR UNKNOWN INDICATION
     Route: 048
  6. INSULIN [Concomitant]
     Active Substance: INSULIN NOS
     Indication: TYPE 2 DIABETES MELLITUS
     Dosage: 14 IU
     Route: 030
  7. ENALAPRIL [Concomitant]
     Active Substance: ENALAPRIL
     Indication: ESSENTIAL HYPERTENSION
     Route: 048
  8. EXVIERA [Suspect]
     Active Substance: DASABUVIR
     Indication: PRODUCT USED FOR UNKNOWN INDICATION
     Dosage: EVERY MORNING + EVERY EVENING
     Route: 048
     Dates: start: 20170629, end: 20170917
  9. BENZODIAZEPINE [Suspect]
     Active Substance: BENZODIAZEPINE
     Indication: PRODUCT USED FOR UNKNOWN INDICATION
     Dosage: OVERDOSE?30?40 PIILLS
     Route: 048
     Dates: start: 20170810, end: 20170810
  10. LACTULOSE SOL [Concomitant]
     Indication: PRODUCT USED FOR UNKNOWN INDICATION
     Route: 048

REACTIONS (6)
  - Toxicity to various agents [Recovered/Resolved]
  - Hyperhidrosis [Unknown]
  - Muscular weakness [Unknown]
  - Loss of consciousness [Unknown]
  - Pallor [Unknown]
  - Chest pain [Unknown]

NARRATIVE: CASE EVENT DATE: 20170810
